FAERS Safety Report 15506163 (Version 1)
Quarter: 2018Q4

REPORT INFORMATION
  Report Type: Spontaneous
  Country: CN (occurrence: CN)
  Receive Date: 20181016
  Receipt Date: 20181016
  Transmission Date: 20190205
  Serious: Yes (Hospitalization)
  Sender: FDA-Public Use
  Company Number: CN-MYLANLABS-2018M1075448

PATIENT
  Age: 70 Year
  Sex: Female

DRUGS (4)
  1. LIDOCAINE. [Concomitant]
     Active Substance: LIDOCAINE
     Indication: EPIDURAL ANAESTHESIA
     Dosage: WAS ADMINISTERED VIA EPIDURAL CATHETER
     Route: 008
  2. BUPIVACAINE. [Suspect]
     Active Substance: BUPIVACAINE
     Indication: EPIDURAL ANAESTHESIA
     Dosage: 8 ML OF A 1.5% LIDOCAINE-0.5% BUPIVACAINE MIXTURE.
     Route: 008
  3. LIDOCAINE. [Concomitant]
     Active Substance: LIDOCAINE
     Dosage: 8 ML OF A 1.5% LIDOCAINE-0.5% BUPIVACAINE MIXTURE.
     Route: 008
  4. DEXMEDETOMIDINE. [Concomitant]
     Active Substance: DEXMEDETOMIDINE
     Indication: PRODUCT USED FOR UNKNOWN INDICATION
     Dosage: CONTINUOUS 0.3 MICROG/KG/H
     Route: 041

REACTIONS (1)
  - Hiccups [Recovered/Resolved]
